FAERS Safety Report 9246912 (Version 5)
Quarter: 2013Q4

REPORT INFORMATION
  Report Type: Spontaneous
  Country: IE (occurrence: IE)
  Receive Date: 20130422
  Receipt Date: 20131206
  Transmission Date: 20140711
  Serious: Yes (Other)
  Sender: FDA-Public Use
  Company Number: IE-GLAXOSMITHKLINE-B0885869A

PATIENT
  Age: 39 Year
  Sex: Female

DRUGS (2)
  1. LAMICTAL [Suspect]
     Indication: IDIOPATHIC GENERALISED EPILEPSY
     Dosage: 100MG TWICE PER DAY
     Route: 065
  2. FOLIC ACID [Concomitant]

REACTIONS (3)
  - Grand mal convulsion [Unknown]
  - Live birth [Unknown]
  - Exposure during pregnancy [Unknown]
